FAERS Safety Report 17564796 (Version 2)
Quarter: 2020Q2

REPORT INFORMATION
  Report Type: Spontaneous
  Country: JP (occurrence: JP)
  Receive Date: 20200320
  Receipt Date: 20200618
  Transmission Date: 20200713
  Serious: Yes (Life-Threatening, Hospitalization)
  Sender: FDA-Public Use
  Company Number: JP-BAYER-2020-043640

PATIENT
  Age: 69 Year
  Sex: Male
  Weight: 45.3 kg

DRUGS (8)
  1. GADOVIST [Suspect]
     Active Substance: GADOBUTROL
     Indication: LUNG NEOPLASM MALIGNANT
  2. VP-16 [Suspect]
     Active Substance: ETOPOSIDE
     Indication: LUNG NEOPLASM MALIGNANT
     Dosage: UNK
     Dates: start: 20200225
  3. MUCOSOLVAN [Concomitant]
     Active Substance: AMBROXOL HYDROCHLORIDE
     Dosage: DAILY DOSE 45 MG
     Route: 048
     Dates: start: 20200219, end: 20200308
  4. DEXTROMETHORPHAN HYDROBROMIDE. [Concomitant]
     Active Substance: DEXTROMETHORPHAN HYDROBROMIDE
     Dosage: DAILY DOSE 45 MG
     Route: 048
     Dates: start: 20200219
  5. LOXONIN [Concomitant]
     Active Substance: LOXOPROFEN SODIUM
     Dosage: DAILY DOSE 180 MG
     Route: 048
     Dates: start: 20200219, end: 20200308
  6. ALTAT [Concomitant]
     Active Substance: ROXATIDINE ACETATE HYDROCHLORIDE
     Dosage: DAILY DOSE 75 MG
     Route: 048
  7. CARBOPLATIN. [Suspect]
     Active Substance: CARBOPLATIN
     Indication: LUNG NEOPLASM MALIGNANT
     Dosage: UNK
     Dates: start: 20200225
  8. GADOVIST [Suspect]
     Active Substance: GADOBUTROL
     Indication: MAGNETIC RESONANCE IMAGING BRAIN
     Dosage: 4.6ML, ONCE
     Route: 042
     Dates: start: 20200311, end: 20200311

REACTIONS (10)
  - Erythema [Recovered/Resolved]
  - Gaze palsy [Recovered/Resolved]
  - Radial pulse abnormal [Recovered/Resolved]
  - Asthenia [Recovered/Resolved]
  - Anaphylactic shock [Recovered/Resolved]
  - Blood pressure decreased [Recovered/Resolved]
  - Oropharyngeal discomfort [Recovered/Resolved]
  - Loss of consciousness [Recovered/Resolved]
  - Febrile neutropenia [None]
  - Unresponsive to stimuli [Recovered/Resolved]

NARRATIVE: CASE EVENT DATE: 20200311
